FAERS Safety Report 14356464 (Version 1)
Quarter: 2018Q1

REPORT INFORMATION
  Report Type: Spontaneous
  Country: JP (occurrence: JP)
  Receive Date: 20180105
  Receipt Date: 20180105
  Transmission Date: 20180509
  Serious: Yes (Hospitalization)
  Sender: FDA-Public Use
  Company Number: JP-BAUSCH-BL-2018-000002

PATIENT
  Age: 53 Year
  Sex: Male

DRUGS (5)
  1. HERBESSER [Suspect]
     Active Substance: DILTIAZEM HYDROCHLORIDE
     Indication: DRUG THERAPY
     Route: 048
     Dates: start: 20170111, end: 20170129
  2. ZETIA [Suspect]
     Active Substance: EZETIMIBE
     Indication: DRUG THERAPY
     Dosage: EVERY CYCLE
     Route: 048
     Dates: start: 20161105, end: 20161105
  3. ZETIA [Suspect]
     Active Substance: EZETIMIBE
     Indication: DRUG THERAPY
     Dosage: EVERY CYCLE
     Route: 048
     Dates: start: 20170131, end: 20170131
  4. AMLODIPINE BESILATE [Suspect]
     Active Substance: AMLODIPINE BESYLATE
     Indication: DRUG THERAPY
     Route: 048
     Dates: start: 20161102, end: 20170131
  5. CANDESARTAN CILEXETIL. [Suspect]
     Active Substance: CANDESARTAN CILEXETIL
     Indication: DRUG THERAPY
     Route: 048
     Dates: start: 20161105, end: 20170131

REACTIONS (1)
  - Toxic skin eruption [Recovering/Resolving]

NARRATIVE: CASE EVENT DATE: 20170115
